FAERS Safety Report 18963217 (Version 1)
Quarter: 2021Q1

REPORT INFORMATION
  Report Type: Spontaneous
  Country: US (occurrence: US)
  Receive Date: 20210303
  Receipt Date: 20210303
  Transmission Date: 20210420
  Serious: Yes (Death)
  Sender: FDA-Public Use
  Company Number: None

PATIENT
  Age: 76 Year
  Sex: Male
  Weight: 87.3 kg

DRUGS (12)
  1. ABIRATERONE. [Suspect]
     Active Substance: ABIRATERONE ACETATE
     Indication: PROSTATE CANCER
     Route: 048
     Dates: start: 20200923, end: 20210226
  2. PREDNISONE. [Concomitant]
     Active Substance: PREDNISONE
  3. ALLOPURINOL. [Concomitant]
     Active Substance: ALLOPURINOL
  4. AMLODIPINE BESYLATE. [Concomitant]
     Active Substance: AMLODIPINE BESYLATE
  5. PANTOPRAZOLE SODIUM. [Concomitant]
     Active Substance: PANTOPRAZOLE SODIUM
  6. SIMVASTATIN. [Concomitant]
     Active Substance: SIMVASTATIN
  7. XARELTO [Concomitant]
     Active Substance: RIVAROXABAN
  8. CITALOPRAM HYDROBROMIDE. [Concomitant]
     Active Substance: CITALOPRAM HYDROBROMIDE
  9. LUPRON DEPOT (3?MONTH) [Concomitant]
  10. METOPROLOL SUCCINATE ER [Concomitant]
     Active Substance: METOPROLOL SUCCINATE
  11. BICALUTAMIDE. [Concomitant]
     Active Substance: BICALUTAMIDE
  12. DILTIAZEM CD [Concomitant]
     Active Substance: DILTIAZEM

REACTIONS (1)
  - Death [None]

NARRATIVE: CASE EVENT DATE: 20210226
